FAERS Safety Report 5599815-6 (Version None)
Quarter: 2008Q1

REPORT INFORMATION
  Report Type: 
  Country: None (occurrence: None)
  Receive Date: 20080118
  Receipt Date: 20080118
  Transmission Date: 20080703
  Serious: Yes (Death)
  Sender: FDA-Public Use
  Company Number: None

PATIENT
  Age: 31 Year
  Sex: Female
  Weight: 73.3 kg

DRUGS (19)
  1. BEVACIZUMAB GENENTECH, INC [Suspect]
     Indication: OVARIAN CANCER
     Dosage: 10 MG/KG INTRAVENOUS DRIP
     Route: 041
     Dates: start: 20071009, end: 20071112
  2. TOPOTECAN GSK [Suspect]
     Indication: OVARIAN CANCER
     Dosage: 4 MG/METERS SQUARED INTRAVENOUS DRIP
     Route: 041
     Dates: start: 20071009, end: 20071112
  3. ACETAMINOPHEN [Concomitant]
  4. BISCODYL [Concomitant]
  5. DILAUDID [Concomitant]
  6. BUPIVACAINE [Concomitant]
  7. EPIDURAL [Concomitant]
  8. DIPHENHYDRAMINE HCL [Concomitant]
  9. ERTAPENEM [Concomitant]
  10. ESTRADIOL [Concomitant]
  11. FAT EMULSION IV [Concomitant]
  12. FENTANYL [Concomitant]
  13. HYDROMORPHONE HCL [Concomitant]
  14. LORAZEPAM [Concomitant]
  15. NICOTINE [Concomitant]
  16. ONDANSETRON [Concomitant]
  17. NUTRITION PARENTERAL [Concomitant]
  18. PROCHLORPERAZINE [Concomitant]
  19. HEPARIN [Concomitant]

REACTIONS (7)
  - ABDOMINAL PAIN [None]
  - CONVULSION [None]
  - DRUG DEPENDENCE [None]
  - HYDRONEPHROSIS [None]
  - INADEQUATE ANALGESIA [None]
  - MALIGNANT NEOPLASM PROGRESSION [None]
  - SEPSIS [None]
